FAERS Safety Report 8097778-5 (Version None)
Quarter: 2012Q1

REPORT INFORMATION
  Report Type: 
  Country: None (occurrence: None)
  Receive Date: 20120128
  Receipt Date: 20110718
  Transmission Date: 20120608
  Serious: No
  Sender: FDA-Public Use
  Company Number: US-ABBOTT-11P-163-0839898-00

PATIENT
  Sex: Female

DRUGS (6)
  1. PERCOCET [Concomitant]
     Indication: PAIN
  2. XANAX [Concomitant]
     Indication: ANXIETY
  3. AMBIEN [Concomitant]
     Indication: INSOMNIA
  4. PERCOCET [Concomitant]
     Indication: CROHN'S DISEASE
  5. HUMIRA [Suspect]
     Indication: CROHN'S DISEASE
     Dates: start: 20110708, end: 20110708
  6. RISPERDAL [Concomitant]
     Indication: ANXIETY

REACTIONS (3)
  - VOMITING [None]
  - NAUSEA [None]
  - SOMNOLENCE [None]
